FAERS Safety Report 16446505 (Version 1)
Quarter: 2019Q2

REPORT INFORMATION
  Report Type: Spontaneous
  Country: US (occurrence: US)
  Receive Date: 20190508
  Receipt Date: 20190508
  Transmission Date: 20190711
  Serious: No
  Sender: FDA-Public Use
  Company Number: None

PATIENT
  Age: 10 Year
  Sex: Male

DRUGS (1)
  1. CATHFLO ACTIVASE [Suspect]
     Active Substance: ALTEPLASE
     Dates: start: 20180303

REACTIONS (3)
  - Off label use [None]
  - Product dispensing error [None]
  - Incorrect route of product administration [None]

NARRATIVE: CASE EVENT DATE: 20190508
